FAERS Safety Report 7214813-4 (Version None)
Quarter: 2011Q1

REPORT INFORMATION
  Report Type: 
  Country: None (occurrence: None)
  Receive Date: 20110107
  Receipt Date: 20100721
  Transmission Date: 20110831
  Serious: No
  Sender: FDA-Public Use
  Company Number: A0849513A

PATIENT
  Age: 65 Year
  Sex: Male

DRUGS (8)
  1. LISINOPRIL [Concomitant]
  2. ZETIA [Concomitant]
  3. NIASPAN [Concomitant]
  4. AMARYL [Concomitant]
  5. ACTOS [Concomitant]
  6. LOVAZA [Suspect]
     Dosage: 2CAP TWICE PER DAY
     Route: 048
     Dates: start: 20090301
  7. METFORMIN [Concomitant]
  8. GEMFIBROZIL [Concomitant]

REACTIONS (2)
  - MEDICATION RESIDUE [None]
  - PRODUCT QUALITY ISSUE [None]
